FAERS Safety Report 18574829 (Version 2)
Quarter: 2020Q4

REPORT INFORMATION
  Report Type: Report from Study
  Country: AU (occurrence: AU)
  Receive Date: 20201203
  Receipt Date: 20201231
  Transmission Date: 20210114
  Serious: Yes (Hospitalization)
  Sender: FDA-Public Use
  Company Number: AU-EMD SERONO-9201726

PATIENT
  Sex: Female

DRUGS (1)
  1. MAVENCLAD [Suspect]
     Active Substance: CLADRIBINE
     Indication: MULTIPLE SCLEROSIS
     Dates: start: 20190720

REACTIONS (3)
  - Urosepsis [Unknown]
  - Ophthalmic herpes zoster [Unknown]
  - Meningitis [Unknown]
